FAERS Safety Report 9839227 (Version 3)
Quarter: 2014Q2

REPORT INFORMATION
  Report Type: Spontaneous
  Country: JP (occurrence: JP)
  Receive Date: 20140123
  Receipt Date: 20140403
  Transmission Date: 20141212
  Serious: Yes (Hospitalization, Other)
  Sender: FDA-Public Use
  Company Number: JP-TAKEDA-2014TJP000749

PATIENT
  Age: 75 Year
  Sex: Male

DRUGS (9)
  1. NESINA TABLETS 25MG [Suspect]
     Indication: TYPE 2 DIABETES MELLITUS
     Dosage: 25 MG, QD
     Route: 048
     Dates: start: 20110823, end: 20131212
  2. SELBEX [Concomitant]
     Indication: ABDOMINAL DISCOMFORT
     Dosage: 50 MG, TID
     Route: 048
  3. GASTER D [Concomitant]
     Indication: ABDOMINAL DISCOMFORT
     Dosage: 20 MG, BID
     Route: 048
  4. METHYCOBAL [Concomitant]
     Indication: HYPOAESTHESIA
     Dosage: 500 ?G, TID
     Route: 048
  5. HERBESSER R100 [Concomitant]
     Dosage: 100 MG, BID
     Route: 048
  6. LIPOVAS                            /00848101/ [Concomitant]
     Indication: HYPERLIPIDAEMIA
     Dosage: 5 MG, QD
     Route: 048
     Dates: start: 20050422
  7. ITOROL [Concomitant]
     Dosage: 20 MG, QID
     Route: 048
  8. METGLUCO [Concomitant]
     Indication: TYPE 2 DIABETES MELLITUS
     Dosage: 500 MG, 1 DAYS
     Route: 048
     Dates: start: 20130920, end: 20131017
  9. METGLUCO [Concomitant]
     Dosage: 500 MG, BID
     Route: 048
     Dates: start: 20131018, end: 20131213

REACTIONS (1)
  - Pancreatitis acute [Recovering/Resolving]
